FAERS Safety Report 4903147-6 (Version None)
Quarter: 2006Q1

REPORT INFORMATION
  Report Type: 
  Country: None (occurrence: None)
  Receive Date: 20060113
  Receipt Date: 20050107
  Transmission Date: 20060701
  Serious: Yes (Other)
  Sender: FDA-Public Use
  Company Number: HQWYE209317JUL04

PATIENT
  Age: 56 Year
  Sex: Female
  Weight: 68.1 kg

DRUGS (6)
  1. PREMPRO [Suspect]
     Indication: HORMONE REPLACEMENT THERAPY
     Dosage: ORAL
     Route: 048
     Dates: start: 19840101
  2. ESTRACE [Suspect]
  3. PREMARIN [Suspect]
     Dosage: ORAL
     Route: 048
     Dates: start: 19740101, end: 19840101
  4. PROVERA [Suspect]
     Dosage: ORAL
     Route: 048
     Dates: start: 19740101, end: 19840101
  5. MAVIK [Concomitant]
  6. MAXZIDE [Concomitant]

REACTIONS (1)
  - BREAST CANCER [None]
